FAERS Safety Report 22973109 (Version 2)
Quarter: 2023Q4

REPORT INFORMATION
  Report Type: Spontaneous
  Country: US (occurrence: US)
  Receive Date: 20230922
  Receipt Date: 20231031
  Transmission Date: 20240109
  Serious: No
  Sender: FDA-Public Use
  Company Number: US-MYLANLABS-2023M1097887

PATIENT
  Sex: Male
  Weight: 12.7 kg

DRUGS (2)
  1. EPIPEN JR [Suspect]
     Active Substance: EPINEPHRINE
     Indication: Multiple allergies
     Dosage: UNK, AS NEEDED
     Route: 030
  2. EPIPEN JR [Suspect]
     Active Substance: EPINEPHRINE
     Dosage: UNK, AS NEEDED
     Route: 030

REACTIONS (2)
  - Liquid product physical issue [None]
  - Product quality issue [None]
